FAERS Safety Report 8180809-1 (Version None)
Quarter: 2012Q1

REPORT INFORMATION
  Report Type: 
  Country: None (occurrence: None)
  Receive Date: 20120302
  Receipt Date: 20120131
  Transmission Date: 20120608
  Serious: Yes (Other)
  Sender: FDA-Public Use
  Company Number: US-ROCHE-1001667

PATIENT
  Sex: Female
  Weight: 45.4 kg

DRUGS (3)
  1. ORTHO TRI-CYCLEN [Concomitant]
  2. ACCUTANE [Suspect]
     Indication: PRODUCT USED FOR UNKNOWN INDICATION
     Dates: start: 19920101
  3. ACCUTANE [Suspect]
     Dates: start: 19960101

REACTIONS (5)
  - IRRITABLE BOWEL SYNDROME [None]
  - COLITIS ULCERATIVE [None]
  - ANXIETY [None]
  - XEROSIS [None]
  - PROCTITIS [None]
